FAERS Safety Report 6589597-3 (Version None)
Quarter: 2010Q1

REPORT INFORMATION
  Report Type: 
  Country: None (occurrence: None)
  Receive Date: 20100218
  Receipt Date: 20100209
  Transmission Date: 20100710
  Serious: Yes (Death)
  Sender: FDA-Public Use
  Company Number: JP-BAXTER-2010BH002907

PATIENT
  Age: 92 Year
  Sex: Female

DRUGS (1)
  1. EXTRANEAL [Suspect]
     Indication: RENAL FAILURE CHRONIC
     Route: 033

REACTIONS (2)
  - MARASMUS [None]
  - RENAL FAILURE [None]
